FAERS Safety Report 7895149-5 (Version None)
Quarter: 2011Q4

REPORT INFORMATION
  Report Type: 
  Country: None (occurrence: None)
  Receive Date: 20111106
  Receipt Date: 20110823
  Transmission Date: 20120403
  Serious: No
  Sender: FDA-Public Use
  Company Number: US-AMGEN-USASP2011043206

PATIENT
  Age: 31 Year
  Sex: Female
  Weight: 90.703 kg

DRUGS (5)
  1. VALTREX [Concomitant]
     Dosage: 500 MG, UNK
  2. MUCINEX [Concomitant]
     Dosage: 1200 MG, UNK
     Route: 048
  3. AUGMENTIN '125' [Concomitant]
     Dosage: 250 MG, UNK
     Route: 048
  4. ORTHO TRI-CYCLEN [Concomitant]
  5. ENBREL [Suspect]
     Indication: PRODUCT USED FOR UNKNOWN INDICATION
     Dosage: 50 MG, QWK

REACTIONS (1)
  - SINUSITIS [None]
